FAERS Safety Report 6552286-5 (Version None)
Quarter: 2010Q1

REPORT INFORMATION
  Report Type: 
  Country: None (occurrence: None)
  Receive Date: 20100126
  Receipt Date: 20100121
  Transmission Date: 20100710
  Serious: Yes (Death)
  Sender: FDA-Public Use
  Company Number: GB-CELGENEUS-167-C5013-10011469

PATIENT
  Sex: Female

DRUGS (1)
  1. CC-5013 [Suspect]
     Indication: CHRONIC LYMPHOCYTIC LEUKAEMIA
     Route: 048
     Dates: start: 20090608

REACTIONS (1)
  - DEATH [None]
